FAERS Safety Report 14777205 (Version 1)
Quarter: 2018Q2

REPORT INFORMATION
  Report Type: Spontaneous
  Country: FR (occurrence: FR)
  Receive Date: 20180419
  Receipt Date: 20180419
  Transmission Date: 20180711
  Serious: Yes (Disabling)
  Sender: FDA-Public Use
  Company Number: FR-MERCK KGAA-2046012

PATIENT
  Age: 43 Year
  Sex: Female

DRUGS (1)
  1. NOVOTHYROX [Suspect]
     Active Substance: LEVOTHYROXINE SODIUM
     Indication: PRODUCT USED FOR UNKNOWN INDICATION

REACTIONS (25)
  - Apathy [None]
  - Mental fatigue [None]
  - Blood alkaline phosphatase decreased [None]
  - Frequent bowel movements [None]
  - Headache [None]
  - Impaired self-care [None]
  - Asthenia [None]
  - Nervousness [None]
  - Vision blurred [None]
  - Pollakiuria [None]
  - Arthralgia [None]
  - Depression [None]
  - Dysuria [None]
  - Fatigue [None]
  - Irritability [None]
  - Pain [None]
  - Decreased activity [None]
  - Somnolence [None]
  - Loss of personal independence in daily activities [None]
  - Condition aggravated [None]
  - Rectal tenesmus [None]
  - Impaired work ability [None]
  - Disturbance in attention [None]
  - Housebound [None]
  - Mood altered [None]

NARRATIVE: CASE EVENT DATE: 2017
